FAERS Safety Report 9640443 (Version 2)
Quarter: 2013Q4

REPORT INFORMATION
  Report Type: Report from Study
  Country: FR (occurrence: FR)
  Receive Date: 20131023
  Receipt Date: 20131023
  Transmission Date: 20140711
  Serious: Yes (Death, Other)
  Sender: FDA-Public Use
  Company Number: FR-CELGENEUS-056-C4047-12081179

PATIENT
  Sex: Female
  Weight: 47 kg

DRUGS (5)
  1. CC-4047 [Suspect]
     Indication: PLASMA CELL MYELOMA
     Dosage: 4 MILLIGRAM
     Route: 048
     Dates: start: 20120626, end: 20120708
  2. CC-4047 [Suspect]
     Dosage: 2 MILLIGRAM
     Route: 048
     Dates: start: 20120810
  3. DEXAMETHASONE [Concomitant]
     Indication: PLASMA CELL MYELOMA
     Dosage: 20 MILLIGRAM
     Route: 065
     Dates: start: 20120626, end: 20120702
  4. KARDEGIC [Concomitant]
     Indication: THROMBOSIS PROPHYLAXIS
     Route: 065
  5. ZOMETA [Concomitant]
     Indication: PRODUCT USED FOR UNKNOWN INDICATION
     Route: 065

REACTIONS (5)
  - Death [Fatal]
  - Pancytopenia [Unknown]
  - Malaise [Not Recovered/Not Resolved]
  - Asthenia [Not Recovered/Not Resolved]
  - Decreased appetite [Not Recovered/Not Resolved]
